FAERS Safety Report 19006889 (Version 1)
Quarter: 2021Q1

REPORT INFORMATION
  Report Type: Other
  Country: CN (occurrence: CN)
  Receive Date: 20210315
  Receipt Date: 20210315
  Transmission Date: 20210420
  Serious: Yes (Death, Other)
  Sender: FDA-Public Use
  Company Number: CN-ROCHE-1983971

PATIENT
  Age: 60 Year
  Sex: Male
  Weight: 82 kg

DRUGS (1)
  1. AVASTIN [Suspect]
     Active Substance: BEVACIZUMAB
     Indication: COLORECTAL CANCER
     Route: 041
     Dates: start: 20161124, end: 20201027

REACTIONS (14)
  - Intestinal polyp [Unknown]
  - Pericardial effusion [Unknown]
  - Hypertension [Unknown]
  - Pleural effusion [Unknown]
  - Dyspnoea [Unknown]
  - Nasopharyngitis [Unknown]
  - Protein urine present [Unknown]
  - Diarrhoea [Unknown]
  - Nasopharyngitis [Unknown]
  - Hypertension [Unknown]
  - Pyrexia [Unknown]
  - Immunodeficiency [Unknown]
  - Full blood count decreased [Unknown]
  - Dyspnoea [Fatal]

NARRATIVE: CASE EVENT DATE: 201911
